FAERS Safety Report 10974689 (Version 1)
Quarter: 2015Q1

REPORT INFORMATION
  Report Type: Spontaneous
  Country: US (occurrence: None)
  Receive Date: 20150331
  Receipt Date: 20150331
  Transmission Date: 20150721
  Serious: No
  Sender: FDA-Public Use
  Company Number: None

PATIENT
  Age: 54 Year
  Sex: Female

DRUGS (1)
  1. BOTOX [Suspect]
     Active Substance: ONABOTULINUMTOXINA
     Indication: MULTIPLE SCLEROSIS
     Dosage: 155 UNITS EVERY 3 MONTHS IM
     Route: 030
     Dates: start: 20140922, end: 20150114

REACTIONS (3)
  - Nausea [None]
  - Dizziness [None]
  - Therapy cessation [None]

NARRATIVE: CASE EVENT DATE: 201501
